FAERS Safety Report 8435165-8 (Version None)
Quarter: 2012Q2

REPORT INFORMATION
  Report Type: 
  Country: None (occurrence: None)
  Receive Date: 20120614
  Receipt Date: 20120606
  Transmission Date: 20120825
  Serious: Yes (Hospitalization)
  Sender: FDA-Public Use
  Company Number: JP-PFIZER INC-2012135431

PATIENT
  Age: 69 Year
  Sex: Male

DRUGS (2)
  1. SULFASALAZINE [Suspect]
     Indication: RHEUMATOID ARTHRITIS
     Dosage: UNK
     Route: 048
     Dates: start: 20090901, end: 20091001
  2. SULFASALAZINE [Suspect]
     Dosage: UNK
     Route: 048
     Dates: start: 20101001, end: 20101001

REACTIONS (2)
  - C-REACTIVE PROTEIN INCREASED [None]
  - DRUG-INDUCED LIVER INJURY [None]
